FAERS Safety Report 8577253-1 (Version None)
Quarter: 2012Q3

REPORT INFORMATION
  Report Type: 
  Country: None (occurrence: None)
  Receive Date: 20120807
  Receipt Date: 20120803
  Transmission Date: 20120928
  Serious: No
  Sender: FDA-Public Use
  Company Number: US-PFIZER INC-2012152280

PATIENT
  Age: 19 Year
  Sex: Male
  Weight: 81.633 kg

DRUGS (1)
  1. GENOTROPIN [Suspect]
     Indication: DWARFISM
     Dosage: 4 MG, 1X/DAY
     Route: 058
     Dates: start: 20120604

REACTIONS (3)
  - OEDEMA [None]
  - FLUID RETENTION [None]
  - INJECTION SITE PAIN [None]
